FAERS Safety Report 23609469 (Version 1)
Quarter: 2024Q1

REPORT INFORMATION
  Report Type: Spontaneous
  Country: US (occurrence: US)
  Receive Date: 20240308
  Receipt Date: 20240308
  Transmission Date: 20240409
  Serious: No
  Sender: FDA-Public Use
  Company Number: US-AVEO PHARMACEUTICALS, INC.-2023-AVEO-US000937

PATIENT

DRUGS (20)
  1. FOTIVDA [Suspect]
     Active Substance: TIVOZANIB HYDROCHLORIDE
     Indication: Renal cell carcinoma
     Dosage: 1.34 MG, DAILY FOR 21 DAYS WITH 7 DAYS OFF (28DAY CYCLE)
     Route: 048
     Dates: start: 20230403
  2. ALBUTEROL [Concomitant]
     Active Substance: ALBUTEROL
  3. COLCHICINE [Concomitant]
     Active Substance: COLCHICINE
  4. DOXEPIN [Concomitant]
     Active Substance: DOXEPIN
  5. DULOXETINE [Concomitant]
     Active Substance: DULOXETINE
  6. ELIQUIS [Concomitant]
     Active Substance: APIXABAN
  7. FENTANYL [Concomitant]
     Active Substance: FENTANYL\FENTANYL CITRATE
  8. FOLIC ACID [Concomitant]
     Active Substance: FOLIC ACID
  9. HYDROCORTISONE [Concomitant]
     Active Substance: HYDROCORTISONE
  10. HYDROMORPHONE [Concomitant]
     Active Substance: HYDROMORPHONE
  11. IMODIUM [Concomitant]
     Active Substance: LOPERAMIDE HYDROCHLORIDE
  12. KEFLEX [Concomitant]
     Active Substance: CEPHALEXIN
  13. LASIX [Concomitant]
     Active Substance: FUROSEMIDE
  14. METOCLOPRAMIDE [Concomitant]
     Active Substance: METOCLOPRAMIDE
  15. METOPROLOL [Concomitant]
     Active Substance: METOPROLOL
  16. NIFEDIPINE [Concomitant]
     Active Substance: NIFEDIPINE
  17. POTASSIUM [Concomitant]
     Active Substance: POTASSIUM
  18. PROTONIX [Concomitant]
     Active Substance: PANTOPRAZOLE SODIUM
  19. SYNTHROID [Concomitant]
     Active Substance: LEVOTHYROXINE SODIUM
  20. ZOFRAN [Concomitant]
     Active Substance: ONDANSETRON HYDROCHLORIDE

REACTIONS (1)
  - Diarrhoea [Unknown]
